FAERS Safety Report 8350589-5 (Version None)
Quarter: 2012Q2

REPORT INFORMATION
  Report Type: 
  Country: None (occurrence: None)
  Receive Date: 20120510
  Receipt Date: 20120426
  Transmission Date: 20120825
  Serious: Yes (Disabling)
  Sender: FDA-Public Use
  Company Number: CA-MERCK-1204USA04315

PATIENT
  Age: 49 Year
  Sex: Female
  Weight: 64 kg

DRUGS (3)
  1. COSOPT [Suspect]
     Route: 047
     Dates: start: 20090409, end: 20111201
  2. COSOPT [Suspect]
     Route: 047
     Dates: start: 20100228, end: 20100301
  3. COSOPT [Suspect]
     Route: 047
     Dates: end: 20111201

REACTIONS (6)
  - OCULAR HYPERAEMIA [None]
  - SKIN IRRITATION [None]
  - EYE SWELLING [None]
  - EYE INFECTION [None]
  - EYE IRRITATION [None]
  - DRY EYE [None]
